APPROVED DRUG PRODUCT: NAPROXEN
Active Ingredient: NAPROXEN
Strength: 500MG
Dosage Form/Route: TABLET;ORAL
Application: A074182 | Product #003
Applicant: PLIVA INC
Approved: Jun 27, 1996 | RLD: No | RS: No | Type: DISCN